FAERS Safety Report 13559786 (Version 1)
Quarter: 2017Q2

REPORT INFORMATION
  Report Type: Report from Study
  Country: NP (occurrence: NP)
  Receive Date: 20170518
  Receipt Date: 20170518
  Transmission Date: 20170830
  Serious: Yes (Other)
  Sender: FDA-Public Use
  Company Number: PHHY2017NP073008

PATIENT
  Sex: Male

DRUGS (1)
  1. GLIVEC [Suspect]
     Active Substance: IMATINIB MESYLATE
     Indication: CHRONIC MYELOID LEUKAEMIA
     Dosage: 400 MG, UNK
     Route: 065

REACTIONS (8)
  - Pancreatic carcinoma [Unknown]
  - Arthralgia [Unknown]
  - Diarrhoea [Unknown]
  - Second primary malignancy [Unknown]
  - Muscle spasms [Unknown]
  - Rash [Unknown]
  - Eye swelling [Unknown]
  - Vomiting [Unknown]
